FAERS Safety Report 23265116 (Version 2)
Quarter: 2024Q2

REPORT INFORMATION
  Report Type: Spontaneous
  Country: US (occurrence: US)
  Receive Date: 20231206
  Receipt Date: 20240624
  Transmission Date: 20240716
  Serious: No
  Sender: FDA-Public Use
  Company Number: US-ELI_LILLY_AND_COMPANY-US202311016558

PATIENT
  Age: 73 Year
  Sex: Female

DRUGS (19)
  1. BASAGLAR [Suspect]
     Active Substance: INSULIN GLARGINE
     Indication: Product used for unknown indication
     Dosage: 10 U, UNKNOWN
     Route: 065
     Dates: start: 20230618, end: 20230628
  2. BASAGLAR [Suspect]
     Active Substance: INSULIN GLARGINE
     Indication: Product used for unknown indication
     Dosage: 10 U, UNKNOWN
     Route: 065
     Dates: start: 20230618, end: 20230628
  3. BASAGLAR [Suspect]
     Active Substance: INSULIN GLARGINE
     Indication: Product used for unknown indication
     Dosage: 10 U, UNKNOWN
     Route: 065
     Dates: start: 20230618, end: 20230628
  4. BASAGLAR [Suspect]
     Active Substance: INSULIN GLARGINE
     Indication: Product used for unknown indication
     Dosage: 10 U, UNKNOWN
     Route: 065
     Dates: start: 20230618, end: 20230628
  5. BASAGLAR [Suspect]
     Active Substance: INSULIN GLARGINE
     Dosage: 14 U, UNKNOWN
     Route: 065
     Dates: start: 20230629
  6. BASAGLAR [Suspect]
     Active Substance: INSULIN GLARGINE
     Dosage: 14 U, UNKNOWN
     Route: 065
     Dates: start: 20230629
  7. BASAGLAR [Suspect]
     Active Substance: INSULIN GLARGINE
     Dosage: 14 U, UNKNOWN
     Route: 065
     Dates: start: 20230629
  8. BASAGLAR [Suspect]
     Active Substance: INSULIN GLARGINE
     Dosage: 14 U, UNKNOWN
     Route: 065
     Dates: start: 20230629
  9. BASAGLAR [Suspect]
     Active Substance: INSULIN GLARGINE
     Dosage: 12 U, UNKNOWN
     Route: 065
     Dates: start: 20230815
  10. BASAGLAR [Suspect]
     Active Substance: INSULIN GLARGINE
     Dosage: 12 U, UNKNOWN
     Route: 065
     Dates: start: 20230815
  11. BASAGLAR [Suspect]
     Active Substance: INSULIN GLARGINE
     Dosage: 12 U, UNKNOWN
     Route: 065
     Dates: start: 20230815
  12. BASAGLAR [Suspect]
     Active Substance: INSULIN GLARGINE
     Dosage: 12 U, UNKNOWN
     Route: 065
     Dates: start: 20230815
  13. BASAGLAR [Suspect]
     Active Substance: INSULIN GLARGINE
     Dosage: 8 U, UNKNOWN
     Route: 065
  14. BASAGLAR [Suspect]
     Active Substance: INSULIN GLARGINE
     Dosage: 8 U, UNKNOWN
     Route: 065
  15. BASAGLAR [Suspect]
     Active Substance: INSULIN GLARGINE
     Dosage: 8 U, UNKNOWN
     Route: 065
  16. BASAGLAR [Suspect]
     Active Substance: INSULIN GLARGINE
     Dosage: 8 U, UNKNOWN
     Route: 065
  17. BASAGLAR [Suspect]
     Active Substance: INSULIN GLARGINE
     Dosage: 7 U, UNKNOWN
     Route: 065
  18. BASAGLAR [Suspect]
     Active Substance: INSULIN GLARGINE
     Dosage: 7 U, UNKNOWN
     Route: 065
  19. METFORMIN [Concomitant]
     Active Substance: METFORMIN HYDROCHLORIDE
     Indication: Product used for unknown indication

REACTIONS (16)
  - Abdominal pain upper [Unknown]
  - Illness [Unknown]
  - Malaise [Unknown]
  - Eructation [Unknown]
  - Flatulence [Unknown]
  - Somnolence [Unknown]
  - Asthenia [Unknown]
  - Waist circumference increased [Unknown]
  - Alopecia [Unknown]
  - Product dose omission issue [Unknown]
  - Diarrhoea [Unknown]
  - Weight increased [Unknown]
  - Injection site haemorrhage [Unknown]
  - Injection site pain [Unknown]
  - Blood glucose decreased [Unknown]
  - Injection site erythema [Unknown]
